FAERS Safety Report 4666597-1 (Version None)
Quarter: 2005Q2

REPORT INFORMATION
  Report Type: 
  Country: None (occurrence: None)
  Receive Date: 20050518
  Receipt Date: 20050502
  Transmission Date: 20051028
  Serious: Yes (Hospitalization)
  Sender: FDA-Public Use
  Company Number: 203811

PATIENT
  Age: 46 Year
  Sex: Female

DRUGS (6)
  1. AVONEX [Suspect]
     Indication: MULTIPLE SCLEROSIS
     Dosage: IM
     Route: 030
     Dates: start: 20040701
  2. AVONEX [Suspect]
     Indication: MULTIPLE SCLEROSIS
     Dosage: IM
     Route: 030
  3. NEURONTIN [Concomitant]
  4. BACLOFEN [Concomitant]
  5. LISINOPRIL [Concomitant]
  6. ESTRATEST [Concomitant]

REACTIONS (6)
  - BLOOD GLUCOSE INCREASED [None]
  - CHOLELITHIASIS [None]
  - MULTIPLE SCLEROSIS RELAPSE [None]
  - PANCREATITIS NECROTISING [None]
  - PLEURAL EFFUSION [None]
  - PSEUDOCYST [None]
